FAERS Safety Report 8589373-6 (Version None)
Quarter: 2012Q3

REPORT INFORMATION
  Report Type: 
  Country: None (occurrence: None)
  Receive Date: 20120813
  Receipt Date: 20120808
  Transmission Date: 20120928
  Serious: Yes (Other)
  Sender: FDA-Public Use
  Company Number: PHHY2012AR069398

PATIENT
  Sex: Female

DRUGS (2)
  1. DIOVAN [Suspect]
     Indication: HYPERTENSION
     Dosage: UNK UKN, UNK
  2. DIOVAN [Suspect]
     Dosage: 160 MG 2 TABLETS DAILY

REACTIONS (5)
  - FRACTURED COCCYX [None]
  - VISUAL IMPAIRMENT [None]
  - ACCIDENT [None]
  - CATARACT [None]
  - CORNEAL DEPOSITS [None]
